FAERS Safety Report 13398730 (Version 1)
Quarter: 2017Q2

REPORT INFORMATION
  Report Type: Spontaneous
  Country: US (occurrence: US)
  Receive Date: 20170403
  Receipt Date: 20170403
  Transmission Date: 20170830
  Serious: Yes (Other)
  Sender: FDA-Public Use
  Company Number: US-ASTRAZENECA-2017SE33608

PATIENT
  Sex: Male
  Weight: 100.7 kg

DRUGS (5)
  1. LISINOPRIL. [Suspect]
     Active Substance: LISINOPRIL
     Indication: BLOOD PRESSURE ABNORMAL
     Route: 048
  2. KLONOPIN [Concomitant]
     Active Substance: CLONAZEPAM
     Indication: ANXIETY
     Route: 065
  3. PROVENTIL RESCUE INHALER [Concomitant]
     Indication: CHRONIC OBSTRUCTIVE PULMONARY DISEASE
     Dosage: AS REQUIRED
     Route: 055
  4. SYMBICORT [Suspect]
     Active Substance: BUDESONIDE\FORMOTEROL FUMARATE DIHYDRATE
     Indication: CHRONIC OBSTRUCTIVE PULMONARY DISEASE
     Dosage: 160/4.5 MCG INHALER, TWO PUFFS TWICE DAILY
     Route: 055
     Dates: start: 2014
  5. SODOL [Concomitant]
     Indication: CARDIAC DISORDER
     Route: 065

REACTIONS (7)
  - Cardiac disorder [Unknown]
  - Off label use of device [Unknown]
  - Prostate cancer [Unknown]
  - Sensation of foreign body [Unknown]
  - Squamous cell carcinoma [Unknown]
  - Dysphonia [Unknown]
  - Myocardial infarction [Unknown]
